FAERS Safety Report 9027902 (Version 1)
Quarter: 2013Q1

REPORT INFORMATION
  Report Type: Spontaneous
  Country: US (occurrence: None)
  Receive Date: 20130114
  Receipt Date: 20130114
  Transmission Date: 20140127
  Serious: Yes (Other)
  Sender: FDA-Public Use
  Company Number: None

PATIENT
  Age: 56 Year
  Sex: Male
  Weight: 114.31 kg

DRUGS (1)
  1. ATORVASTATIN [Suspect]
     Indication: DYSLIPIDAEMIA
     Route: 048
     Dates: start: 20120314, end: 20120328

REACTIONS (3)
  - Abdominal pain upper [None]
  - Arthralgia [None]
  - Myalgia [None]
